APPROVED DRUG PRODUCT: LIDOCAINE HYDROCHLORIDE PRESERVATIVE FREE
Active Ingredient: LIDOCAINE HYDROCHLORIDE
Strength: 20%
Dosage Form/Route: INJECTABLE;INJECTION
Application: N017702 | Product #001
Applicant: INTERNATIONAL MEDICATION SYSTEM
Approved: Approved Prior to Jan 1, 1982 | RLD: No | RS: No | Type: DISCN